FAERS Safety Report 9315190 (Version 2)
Quarter: 2013Q3

REPORT INFORMATION
  Report Type: Spontaneous
  Country: NO (occurrence: NO)
  Receive Date: 20130529
  Receipt Date: 20130710
  Transmission Date: 20140515
  Serious: Yes (Hospitalization)
  Sender: FDA-Public Use
  Company Number: PHHY2013NO051476

PATIENT
  Age: 44 Year
  Sex: Female

DRUGS (3)
  1. CLOZAPINE [Suspect]
  2. ZIPRASIDONE [Suspect]
  3. LITHIUM [Concomitant]

REACTIONS (6)
  - Delusion [Unknown]
  - Mania [Unknown]
  - Catatonia [Unknown]
  - Major depression [Unknown]
  - Psychotic disorder [Unknown]
  - Neuroleptic malignant syndrome [Unknown]
